FAERS Safety Report 11092722 (Version 1)
Quarter: 2015Q2

REPORT INFORMATION
  Report Type: Spontaneous
  Country: US (occurrence: None)
  Receive Date: 20150505
  Receipt Date: 20150505
  Transmission Date: 20150821
  Serious: Yes (Disabling)
  Sender: FDA-Public Use
  Company Number: None

PATIENT
  Age: 43 Year
  Sex: Female
  Weight: 79.38 kg

DRUGS (19)
  1. ALDARA [Suspect]
     Active Substance: IMIQUIMOD
     Indication: PRECANCEROUS SKIN LESION
     Dates: start: 20070507, end: 20070810
  2. PERCOCET [Concomitant]
     Active Substance: ACETAMINOPHEN\OXYCODONE HYDROCHLORIDE
  3. PROGESTERONE. [Concomitant]
     Active Substance: PROGESTERONE
  4. FISH OIL [Concomitant]
     Active Substance: FISH OIL
  5. IRON [Concomitant]
     Active Substance: IRON
  6. VITAMIN B COMPLEX [Concomitant]
     Active Substance: CYANOCOBALAMIN\DEXPANTHENOL\NIACINAMIDE\PYRIDOXINE HYDROCHLORIDE\RIBOFLAVIN 5^-PHOSPHATE SODIUM\THIAMINE HYDROCHLORIDE\VITAMIN B COMPLEX
  7. PROBIOTICS [Concomitant]
     Active Substance: PROBIOTICS NOS
  8. VITAMIN C [Concomitant]
     Active Substance: ASCORBIC ACID
  9. NAPOXEN [Concomitant]
  10. MAGNESIUM [Concomitant]
     Active Substance: MAGNESIUM
  11. COQ10 [Concomitant]
     Active Substance: UBIDECARENONE
  12. SELENIUM [Concomitant]
     Active Substance: SELENIUM
  13. VITD [Concomitant]
  14. AMBIEN [Concomitant]
     Active Substance: ZOLPIDEM TARTRATE
  15. FLAX SEED [Concomitant]
     Active Substance: FLAX SEED
  16. SAVELLA [Concomitant]
     Active Substance: MILNACIPRAN HYDROCHLORIDE
  17. ESTROGEN [Concomitant]
     Active Substance: ESTRONE\SUS SCROFA OVARY
  18. XANAX [Concomitant]
     Active Substance: ALPRAZOLAM
  19. PREDNISONE. [Concomitant]
     Active Substance: PREDNISONE

REACTIONS (4)
  - Hot flush [None]
  - Myalgia [None]
  - Arthralgia [None]
  - Fibromyalgia [None]

NARRATIVE: CASE EVENT DATE: 20070520
